FAERS Safety Report 23390941 (Version 2)
Quarter: 2025Q1

REPORT INFORMATION
  Report Type: Report from Study
  Country: CA (occurrence: CA)
  Receive Date: 20240111
  Receipt Date: 20250129
  Transmission Date: 20250408
  Serious: Yes (Other)
  Sender: TAKEDA
  Company Number: CA-TAKEDA-2024TUS001428

PATIENT
  Sex: Male

DRUGS (2)
  1. VEDOLIZUMAB [Suspect]
     Active Substance: VEDOLIZUMAB
     Indication: Crohn^s disease
  2. VEDOLIZUMAB [Suspect]
     Active Substance: VEDOLIZUMAB

REACTIONS (7)
  - Small intestinal obstruction [Unknown]
  - Frequent bowel movements [Unknown]
  - Faeces soft [Unknown]
  - Abdominal mass [Unknown]
  - Diarrhoea [Unknown]
  - Drug effect less than expected [Unknown]
  - Abdominal pain [Unknown]
